FAERS Safety Report 25549682 (Version 1)
Quarter: 2025Q3

REPORT INFORMATION
  Report Type: Spontaneous
  Country: US (occurrence: US)
  Receive Date: 20250714
  Receipt Date: 20250714
  Transmission Date: 20251020
  Serious: No
  Sender: GALDERMA
  Company Number: US-GALDERMA-US2025010897

PATIENT

DRUGS (1)
  1. DIFFERIN GEL [Suspect]
     Active Substance: ADAPALENE
     Indication: Acne
     Route: 061
     Dates: start: 202506

REACTIONS (4)
  - Erythema [Unknown]
  - Skin exfoliation [Unknown]
  - Skin tightness [Unknown]
  - Pain of skin [Unknown]

NARRATIVE: CASE EVENT DATE: 20250620
